FAERS Safety Report 9194043 (Version 1)
Quarter: 2013Q1

REPORT INFORMATION
  Report Type: Spontaneous
  Country: VN (occurrence: VN)
  Receive Date: 20130327
  Receipt Date: 20130327
  Transmission Date: 20140127
  Serious: Yes (Hospitalization)
  Sender: FDA-Public Use
  Company Number: VN-BAXTER-2013BAX010920

PATIENT
  Sex: Female

DRUGS (1)
  1. DIANEAL LOW CALCIUM (2,5MEQ.L) PERITIONEAL DIALYSIS SOLUTION WITH 2.5% [Suspect]
     Indication: PERITONEAL DIALYSIS
     Route: 033
     Dates: start: 20080616

REACTIONS (2)
  - Diarrhoea [Unknown]
  - Peritonitis [Recovering/Resolving]
